FAERS Safety Report 18293406 (Version 1)
Quarter: 2020Q3

REPORT INFORMATION
  Report Type: Spontaneous
  Country: US (occurrence: US)
  Receive Date: 20200921
  Receipt Date: 20200921
  Transmission Date: 20201103
  Serious: Yes (Other)
  Sender: FDA-Public Use
  Company Number: None

PATIENT
  Age: 30 Year
  Sex: Female
  Weight: 54.9 kg

DRUGS (3)
  1. LEXAPRO [Suspect]
     Active Substance: ESCITALOPRAM OXALATE
     Indication: ANXIETY
     Dates: start: 20200916, end: 20200917
  2. LEXAPRO [Suspect]
     Active Substance: ESCITALOPRAM OXALATE
     Indication: DEPRESSION
     Dates: start: 20200916, end: 20200917
  3. JUNEL 1/20 [Concomitant]
     Active Substance: ETHINYL ESTRADIOL\NORETHINDRONE ACETATE

REACTIONS (18)
  - Feeling jittery [None]
  - Balance disorder [None]
  - Toxicity to various agents [None]
  - Decreased appetite [None]
  - Hyperhidrosis [None]
  - Presyncope [None]
  - Heart rate increased [None]
  - Paraesthesia [None]
  - Nausea [None]
  - Palpitations [None]
  - Hypertension [None]
  - Muscle tightness [None]
  - Serotonin syndrome [None]
  - Feeling abnormal [None]
  - Muscle spasms [None]
  - Limb discomfort [None]
  - Depressed mood [None]
  - Hypoaesthesia [None]

NARRATIVE: CASE EVENT DATE: 20200917
